FAERS Safety Report 24918559 (Version 2)
Quarter: 2025Q1

REPORT INFORMATION
  Report Type: Spontaneous
  Country: CH (occurrence: CH)
  Receive Date: 20250203
  Receipt Date: 20250206
  Transmission Date: 20250409
  Serious: Yes (Other)
  Sender: PFIZER
  Company Number: None

PATIENT
  Age: 24 Year
  Sex: Female
  Weight: 86 kg

DRUGS (28)
  1. METHYLPREDNISOLONE [Suspect]
     Active Substance: METHYLPREDNISOLONE
     Indication: Post transplant lymphoproliferative disorder
     Dosage: 125 MG, 1X/DAY
     Route: 042
     Dates: start: 20240427, end: 20240427
  2. METHYLPREDNISOLONE [Suspect]
     Active Substance: METHYLPREDNISOLONE
     Dosage: VARIABLE DOSES OF 125 TO 1000 MG 2X/D
     Route: 042
     Dates: start: 20241207, end: 20241216
  3. METHYLPREDNISOLONE [Suspect]
     Active Substance: METHYLPREDNISOLONE
     Dosage: VARIABLE DOSES OF 20-60 MG 2X/D
     Route: 042
     Dates: start: 20241216, end: 20250101
  4. PREDNISONE [Suspect]
     Active Substance: PREDNISONE
     Indication: Post transplant lymphoproliferative disorder
     Dosage: 100 MG, 1X/DAY
     Route: 048
     Dates: start: 20240426, end: 20240429
  5. PREDNISONE [Suspect]
     Active Substance: PREDNISONE
     Dosage: 30 MG, 1X/DAY
     Route: 048
     Dates: start: 20240204, end: 20240401
  6. PREDNISONE [Suspect]
     Active Substance: PREDNISONE
     Dosage: 20 MG, 1X/DAY
     Route: 048
     Dates: start: 20240402, end: 20240425
  7. PREDNISONE [Suspect]
     Active Substance: PREDNISONE
     Dosage: 20 MG, 1X/DAY
     Route: 048
     Dates: start: 20240430, end: 20240502
  8. PREDNISONE [Suspect]
     Active Substance: PREDNISONE
     Dosage: 50 MG, 1X/DAY
     Route: 048
     Dates: start: 20240503, end: 20240516
  9. PREDNISONE [Suspect]
     Active Substance: PREDNISONE
     Dosage: 40 MG, 1X/DAY
     Route: 048
     Dates: start: 20240517, end: 20240522
  10. PREDNISONE [Suspect]
     Active Substance: PREDNISONE
     Dosage: 20 MG, 1X/DAY
     Route: 048
     Dates: start: 20240523, end: 20240616
  11. PREDNISONE [Suspect]
     Active Substance: PREDNISONE
     Dosage: 30 MG, 1X/DAY
     Route: 048
     Dates: start: 20240617, end: 202408
  12. PREDNISONE [Suspect]
     Active Substance: PREDNISONE
     Dosage: 15 MG, 1X/DAY
     Route: 048
     Dates: start: 202408
  13. CRESEMBA [Concomitant]
     Active Substance: ISAVUCONAZONIUM SULFATE
     Dosage: 200 MG, 1X/DAY - 2 CAPS A DAY
     Route: 048
     Dates: start: 202404
  14. CELLCEPT [Concomitant]
     Active Substance: MYCOPHENOLATE MOFETIL
     Dosage: 250 MG, 2X/DAY
     Route: 048
     Dates: start: 202404
  15. PROGRAF [Concomitant]
     Active Substance: TACROLIMUS
     Dosage: 2X/D -  5MG AT 8:00 AND 5.5 MG AT 20:00
     Route: 048
     Dates: start: 202404
  16. AZITHROMYCIN [Concomitant]
     Active Substance: AZITHROMYCIN
     Dosage: 3X0.5 FILM-COATED TABLET/WEEK
     Route: 048
     Dates: start: 202404
  17. BACTRIM [Concomitant]
     Active Substance: SULFAMETHOXAZOLE\TRIMETHOPRIM
     Dosage: 1 DF, 1X/DAY
     Route: 048
     Dates: start: 202404
  18. PREVYMIS [Concomitant]
     Active Substance: LETERMOVIR
     Dosage: 2 TABS/DAY = 480MG
     Route: 048
     Dates: start: 202404
  19. VALTREX [Concomitant]
     Active Substance: VALACYCLOVIR HYDROCHLORIDE
     Dosage: 500 MG, 2X/DAY = 2TABS/DAY
     Route: 048
     Dates: start: 202404
  20. METOPROLOL SUCCINATE [Concomitant]
     Active Substance: METOPROLOL SUCCINATE
     Dosage: 100 MG, 1X/DAY - 2 TABS
     Route: 048
     Dates: start: 202404
  21. NEURODOL [LIDOCAINE] [Concomitant]
     Dosage: 1 PLASTER, DAILY
     Dates: start: 202404
  22. DAFALGAN [Concomitant]
     Active Substance: ACETAMINOPHEN
     Dosage: 1 DF, 3X/DAY
     Route: 048
     Dates: start: 202404
  23. OXYCODONE [Concomitant]
     Active Substance: OXYCODONE
     Dosage: 1 DF, 2X/DAY
     Route: 048
     Dates: start: 202404
  24. LYRICA [Concomitant]
     Active Substance: PREGABALIN
     Dosage: 1 DF, 1X/DAY
     Route: 048
     Dates: start: 202404
  25. ESOMEPRAZOLE MAGNESIUM [Concomitant]
     Active Substance: ESOMEPRAZOLE MAGNESIUM
     Dosage: 40 MG, DAILY - 1 TABLET/DAY
     Route: 048
     Dates: start: 202404
  26. MIRTAZAPINE [Concomitant]
     Active Substance: MIRTAZAPINE
     Dosage: 30 MG, 1X/DAY -  2 TABLETS
     Route: 048
     Dates: start: 202404
  27. MELATONIN VITABALANS [Concomitant]
     Dosage: 1 TABLET, 1X/DAY
     Route: 048
  28. FOLIC ACID [Concomitant]
     Active Substance: FOLIC ACID
     Route: 048
     Dates: start: 202404

REACTIONS (3)
  - Hypertriglyceridaemia [Recovered/Resolved]
  - Hypercholesterolaemia [Recovered/Resolved]
  - Off label use [Unknown]

NARRATIVE: CASE EVENT DATE: 20240427
